FAERS Safety Report 8904606 (Version 1)
Quarter: 2012Q4

REPORT INFORMATION
  Report Type: 
  Country: CA (occurrence: CA)
  Receive Date: 20121113
  Receipt Date: 20121113
  Transmission Date: 20130627
  Serious: Yes (Other)
  Sender: FDA-Public Use
  Company Number: PHBS2001CA01399

PATIENT
  Age: 80 Year
  Sex: Female

DRUGS (10)
  1. EXELON [Suspect]
     Indication: DEMENTIA ALZHEIMER^S TYPE
     Dosage: 1.5 mg, BID
     Route: 048
     Dates: start: 20001115
  2. EXELON [Suspect]
     Dosage: 3 mg, BID
     Route: 048
     Dates: start: 20001215, end: 20001222
  3. HYDERGINE [Concomitant]
     Dosage: 1 mg, TID
     Route: 048
  4. OXYBUTYNIN [Concomitant]
     Dosage: 5 mg, QHS
     Route: 048
  5. ASA [Concomitant]
     Dosage: 325 mg, QD
     Route: 048
  6. LEVOTHYROXINE [Concomitant]
     Dosage: .05 mg, QD
     Route: 048
  7. ESTRADIOL [Concomitant]
     Route: 048
  8. PROGESTERONE [Concomitant]
     Dosage: 100 MEq, QD
     Route: 048
  9. SIMVASTATIN [Concomitant]
     Dosage: 10 mg, QD
     Route: 048
  10. VITAMIN E [Concomitant]
     Dosage: 400 IU, BID
     Route: 048

REACTIONS (6)
  - Disorientation [Recovering/Resolving]
  - Confusional state [Recovering/Resolving]
  - Apraxia [Recovering/Resolving]
  - Agitation [Recovering/Resolving]
  - Insomnia [Recovering/Resolving]
  - Drug ineffective [Recovering/Resolving]
